FAERS Safety Report 8452271-2 (Version None)
Quarter: 2012Q2

REPORT INFORMATION
  Report Type: 
  Country: None (occurrence: None)
  Receive Date: 20120620
  Receipt Date: 20120611
  Transmission Date: 20120825
  Serious: Yes (Other)
  Sender: FDA-Public Use
  Company Number: US-ELI_LILLY_AND_COMPANY-US201206004547

PATIENT
  Sex: Female

DRUGS (1)
  1. FORTEO [Suspect]
     Indication: OSTEOPOROSIS
     Dosage: 20 MG, UNK
     Dates: end: 20111201

REACTIONS (4)
  - MALIGNANT MELANOMA [None]
  - DRUG INEFFECTIVE [None]
  - ARTHRALGIA [None]
  - MELANOCYTIC NAEVUS [None]
